FAERS Safety Report 13429366 (Version 1)
Quarter: 2017Q2

REPORT INFORMATION
  Report Type: Spontaneous
  Country: JP (occurrence: JP)
  Receive Date: 20170411
  Receipt Date: 20170411
  Transmission Date: 20170830
  Serious: Yes (Death, Other)
  Sender: FDA-Public Use
  Company Number: JP-BAUSCH-BL-2017-009119

PATIENT
  Age: 81 Year
  Sex: Female
  Weight: 80 kg

DRUGS (2)
  1. PREDNISOLONE. [Suspect]
     Active Substance: PREDNISOLONE
     Indication: FOCAL SEGMENTAL GLOMERULOSCLEROSIS
     Route: 048
     Dates: start: 2014
  2. CICLOSPORIN [Concomitant]
     Active Substance: CYCLOSPORINE
     Indication: FOCAL SEGMENTAL GLOMERULOSCLEROSIS
     Route: 048
     Dates: start: 2014

REACTIONS (1)
  - Substance-induced psychotic disorder [Unknown]

NARRATIVE: CASE EVENT DATE: 2014
